FAERS Safety Report 6383274-X (Version None)
Quarter: 2009Q3

REPORT INFORMATION
  Report Type: 
  Country: None (occurrence: None)
  Receive Date: 20090929
  Receipt Date: 20090918
  Transmission Date: 20100115
  Serious: Yes (Other)
  Sender: FDA-Public Use
  Company Number: 2009AP003823

PATIENT
  Age: 67 Year
  Sex: Female

DRUGS (3)
  1. LISINOPRIL [Suspect]
     Dosage: PO, TAB; PO
     Route: 048
     Dates: start: 20050101
  2. LISINOPRIL [Suspect]
     Dosage: PO, TAB; PO
     Route: 048
     Dates: start: 20050101
  3. RAN-CITALOPRAM (CITALOPRAM HYDROBROMIDE) [Suspect]

REACTIONS (1)
  - HYPERADRENALISM [None]
